FAERS Safety Report 17526652 (Version 1)
Quarter: 2020Q1

REPORT INFORMATION
  Report Type: Spontaneous
  Country: UA (occurrence: UA)
  Receive Date: 20200311
  Receipt Date: 20200311
  Transmission Date: 20200409
  Serious: Yes (Other)
  Sender: FDA-Public Use
  Company Number: UA-JNJFOC-20200305083

PATIENT
  Age: 79 Year
  Sex: Female

DRUGS (1)
  1. RIVAROXABAN [Suspect]
     Active Substance: RIVAROXABAN
     Indication: ATRIAL FIBRILLATION
     Dosage: 20 MG, QD
     Route: 048
     Dates: start: 2013

REACTIONS (5)
  - Ischaemic stroke [Unknown]
  - Hypothyroidism [Unknown]
  - Varicose vein [Unknown]
  - Chronic hepatitis [Unknown]
  - Thoracotomy [Unknown]

NARRATIVE: CASE EVENT DATE: 20200206
